FAERS Safety Report 8564957 (Version 2)
Quarter: 2014Q3

REPORT INFORMATION
  Report Type: Report from Study
  Country: US (occurrence: US)
  Receive Date: 20120516
  Receipt Date: 20140917
  Transmission Date: 20150326
  Serious: Yes (Hospitalization, Other)
  Sender: FDA-Public Use
  Company Number: US-ALEXION-A201200262

PATIENT

DRUGS (2)
  1. SOLIRIS [Suspect]
     Active Substance: ECULIZUMAB
     Indication: HAEMOLYTIC URAEMIC SYNDROME
     Dosage: 900 MG, UNK
     Route: 042
     Dates: start: 20120205, end: 20120208
  2. SOLIRIS [Suspect]
     Active Substance: ECULIZUMAB
     Dosage: 600 MG, UNK
     Route: 042
     Dates: start: 20120214

REACTIONS (10)
  - Confusional state [Unknown]
  - Blood pressure increased [Recovered/Resolved]
  - Proteinuria [Unknown]
  - Cognitive disorder [Unknown]
  - Amnesia [Unknown]
  - Headache [Unknown]
  - Depression [Unknown]
  - Hypotension [Recovered/Resolved]
  - Vision blurred [Unknown]
  - Anxiety [Unknown]

NARRATIVE: CASE EVENT DATE: 20120213
